FAERS Safety Report 25166200 (Version 1)
Quarter: 2025Q2

REPORT INFORMATION
  Report Type: Spontaneous
  Country: US (occurrence: US)
  Receive Date: 20250407
  Receipt Date: 20250407
  Transmission Date: 20250717
  Serious: Yes (Other)
  Sender: TAKEDA
  Company Number: US-TAKEDA-2025TUS031757

PATIENT
  Sex: Female
  Weight: 73 kg

DRUGS (15)
  1. ENTYVIO [Suspect]
     Active Substance: VEDOLIZUMAB
     Indication: Colitis ulcerative
  2. PREDNISONE [Suspect]
     Active Substance: PREDNISONE
     Indication: Product used for unknown indication
  3. POTASSIUM [Concomitant]
     Active Substance: POTASSIUM
  4. VITAMIN D [Concomitant]
     Active Substance: VITAMIN D NOS
  5. MAGNESIUM [Concomitant]
     Active Substance: MAGNESIUM
  6. VITAMIN C [Concomitant]
     Active Substance: ASCORBIC ACID
  7. METAMUCIL [Concomitant]
     Active Substance: PLANTAGO SEED
  8. LIPITOR [Concomitant]
     Active Substance: ATORVASTATIN CALCIUM
     Indication: Blood cholesterol
  9. ROSUVASTATIN [Concomitant]
     Active Substance: ROSUVASTATIN
     Indication: Blood cholesterol
  10. APRISO [Concomitant]
     Active Substance: MESALAMINE
     Indication: Colitis
  11. LODOXAMIDE [Concomitant]
     Active Substance: LODOXAMIDE
     Indication: Colitis
  12. FOLIC ACID [Concomitant]
     Active Substance: FOLIC ACID
  13. VITAMIN B [Concomitant]
     Active Substance: VITAMIN B
  14. FISH OIL [Concomitant]
     Active Substance: FISH OIL
  15. VITAMIN E [Concomitant]
     Active Substance: .ALPHA.-TOCOPHEROL

REACTIONS (9)
  - Deafness unilateral [Unknown]
  - Balance disorder [Unknown]
  - Cyst [Unknown]
  - Hypoaesthesia [Unknown]
  - Tinnitus [Unknown]
  - Ear inflammation [Unknown]
  - Visual impairment [Unknown]
  - Depression [Unknown]
  - Dizziness [Unknown]
